FAERS Safety Report 13842844 (Version 1)
Quarter: 2017Q3

REPORT INFORMATION
  Report Type: Spontaneous
  Country: US (occurrence: US)
  Receive Date: 20170808
  Receipt Date: 20170808
  Transmission Date: 20171127
  Serious: No
  Sender: FDA-Public Use
  Company Number: US-GALDERMA-US17004529

PATIENT
  Age: 55 Year
  Sex: Female

DRUGS (5)
  1. ZYRTEC [Concomitant]
     Active Substance: CETIRIZINE HYDROCHLORIDE
     Indication: PRODUCT USED FOR UNKNOWN INDICATION
  2. FISH OIL [Concomitant]
     Active Substance: FISH OIL
     Indication: PRODUCT USED FOR UNKNOWN INDICATION
  3. EPIDUO FORTE [Suspect]
     Active Substance: ADAPALENE\BENZOYL PEROXIDE
     Indication: ACNE CYSTIC
     Dosage: 0.3%/2.5%
     Route: 061
     Dates: start: 201610, end: 201706
  4. LABETALOL [Concomitant]
     Active Substance: LABETALOL\LABETALOL HYDROCHLORIDE
     Indication: PRODUCT USED FOR UNKNOWN INDICATION
  5. B2 [Concomitant]
     Indication: PRODUCT USED FOR UNKNOWN INDICATION
     Dosage: 200 MG

REACTIONS (2)
  - Drug ineffective [Recovered/Resolved]
  - Acne [Recovered/Resolved]

NARRATIVE: CASE EVENT DATE: 201610
